FAERS Safety Report 10332860 (Version 1)
Quarter: 2014Q3

REPORT INFORMATION
  Report Type: Spontaneous
  Country: FR (occurrence: FR)
  Receive Date: 20140722
  Receipt Date: 20140722
  Transmission Date: 20150326
  Serious: Yes (Death, Hospitalization, Other)
  Sender: FDA-Public Use
  Company Number: PHHY2014FR088206

PATIENT
  Age: 32 Year
  Sex: Male

DRUGS (6)
  1. LOXEN [Suspect]
     Active Substance: NICARDIPINE HYDROCHLORIDE
     Dosage: 800 MG, SINGLE
     Route: 048
  2. SEROPLEX [Suspect]
     Active Substance: ESCITALOPRAM OXALATE
     Dosage: 560 MG, SINGLE
     Route: 048
  3. NOCTAMIDE [Suspect]
     Active Substance: LORMETAZEPAM
     Dosage: 12 MG, SINGLE
     Route: 048
  4. VERAPAMIL [Suspect]
     Active Substance: VERAPAMIL HYDROCHLORIDE
     Dosage: 1200 MG, SINGLE
     Route: 048
  5. THYROZOL [Suspect]
     Active Substance: METHIMAZOLE
     Dosage: 400 MG,  SINGLE
     Route: 048
  6. LOXEN LP [Suspect]
     Active Substance: NICARDIPINE
     Dosage: 4000 MG, SINGLE
     Route: 048

REACTIONS (2)
  - Vasoplegia syndrome [Fatal]
  - Cardiogenic shock [Fatal]

NARRATIVE: CASE EVENT DATE: 20140605
